FAERS Safety Report 11937305 (Version 5)
Quarter: 2017Q1

REPORT INFORMATION
  Report Type: Spontaneous
  Country: US (occurrence: US)
  Receive Date: 20160121
  Receipt Date: 20170126
  Transmission Date: 20170428
  Serious: No
  Sender: FDA-Public Use
  Company Number: US-ACTELION PHARMACEUTICALS US, INC.-A-US2016-130134

PATIENT
  Age: 41 Year
  Sex: Female

DRUGS (1)
  1. VELETRI [Suspect]
     Active Substance: EPOPROSTENOL
     Indication: PULMONARY HYPERTENSION
     Dosage: 8 NG/KG, PER MIN
     Route: 042
     Dates: start: 20160106

REACTIONS (13)
  - Headache [Unknown]
  - Middle ear effusion [Unknown]
  - Muscle twitching [Unknown]
  - Muscle spasms [Unknown]
  - Pain in jaw [Unknown]
  - Ear discomfort [Unknown]
  - Catheter site pain [Unknown]
  - Catheter site inflammation [Unknown]
  - Diarrhoea [Unknown]
  - Catheter management [Unknown]
  - Blood count abnormal [Unknown]
  - Flushing [Unknown]
  - Device dislocation [Unknown]

NARRATIVE: CASE EVENT DATE: 201608
